FAERS Safety Report 20101226 (Version 1)
Quarter: 2021Q4

REPORT INFORMATION
  Report Type: Spontaneous
  Country: US (occurrence: US)
  Receive Date: 20211123
  Receipt Date: 20211123
  Transmission Date: 20220303
  Serious: Yes (Life-Threatening, Hospitalization)
  Sender: FDA-Public Use
  Company Number: US-JNJFOC-20211131285

PATIENT
  Age: 30 Year
  Sex: Female

DRUGS (8)
  1. TYLENOL EXTRA STRENGTH [Suspect]
     Active Substance: ACETAMINOPHEN
     Indication: Product used for unknown indication
     Dosage: TOTAL DOSE OF 12000 MG PER DAY OF (ACETAMINOPHEN 500 MG) FOR 2 DAYS
     Route: 048
     Dates: start: 19980224, end: 19980225
  2. DARVOCET [Suspect]
     Active Substance: ACETAMINOPHEN\PROPOXYPHENE HYDROCHLORIDE
     Indication: Product used for unknown indication
     Dosage: TOTAL DOSE 1000 MG FOR 1 DAYS
     Route: 065
     Dates: start: 19980225, end: 19980225
  3. EXCEDRIN EXTRA STRENGTH [Suspect]
     Active Substance: ACETAMINOPHEN\ASPIRIN\CAFFEINE
     Indication: Product used for unknown indication
     Dosage: TOTAL DOSE 1000 MG FOR 1 DAY
     Route: 065
     Dates: start: 19980225, end: 19980225
  4. TEGRETOL [Concomitant]
     Active Substance: CARBAMAZEPINE
     Indication: Product used for unknown indication
     Dosage: 1000 MG PER DAY FOR 90 MONTHS
     Route: 065
     Dates: end: 19980227
  5. MYSOLINE [Concomitant]
     Active Substance: PRIMIDONE
     Indication: Product used for unknown indication
     Dosage: 50 MG 3 TIMES A DAY (750 MG DAILY) FOR 48 MONTHS
     Route: 065
     Dates: end: 19980227
  6. MEMANTINE [Concomitant]
     Active Substance: MEMANTINE
     Indication: Product used for unknown indication
     Dosage: 300 MG THREE TIMES A DAY (900 MG/DAY) FOR 48 MONTHS
     Route: 065
     Dates: end: 19980227
  7. IMITREX [Concomitant]
     Active Substance: SUMATRIPTAN SUCCINATE
     Indication: Product used for unknown indication
     Dosage: UNKNOWN DOSE FOR 12 MONTHS
     Route: 065
     Dates: end: 19980215
  8. LEVSIN [Concomitant]
     Active Substance: HYOSCYAMINE SULFATE
     Indication: Product used for unknown indication
     Dosage: UNKNOWN DOSE FOR 12 MONTHS
     Route: 065
     Dates: end: 19980215

REACTIONS (8)
  - Accidental overdose [Unknown]
  - Acute hepatic failure [Unknown]
  - Acute respiratory distress syndrome [Unknown]
  - Pneumothorax [Unknown]
  - Pneumonia [Unknown]
  - Gastrointestinal haemorrhage [Unknown]
  - Klebsiella infection [Unknown]
  - Product administration error [Unknown]
